FAERS Safety Report 23331278 (Version 1)
Quarter: 2023Q4

REPORT INFORMATION
  Report Type: Spontaneous
  Country: ES (occurrence: ES)
  Receive Date: 20231222
  Receipt Date: 20231222
  Transmission Date: 20240110
  Serious: Yes (Death, Other)
  Sender: FDA-Public Use
  Company Number: ES-BAXTER-2023BAX037128

PATIENT
  Age: 92 Year
  Sex: Female

DRUGS (13)
  1. CAPECITABINE [Suspect]
     Active Substance: CAPECITABINE
     Indication: Breast cancer metastatic
     Dosage: UNK
     Route: 048
     Dates: start: 202108, end: 202112
  2. CAPECITABINE [Suspect]
     Active Substance: CAPECITABINE
     Indication: HER2 negative breast cancer
  3. CAPECITABINE [Suspect]
     Active Substance: CAPECITABINE
     Indication: Invasive ductal breast carcinoma
  4. FULVESTRANT [Suspect]
     Active Substance: FULVESTRANT
     Indication: HER2 negative breast cancer
     Dosage: UNK, FROM 2017, ONGOING
     Route: 065
     Dates: start: 2017
  5. FULVESTRANT [Suspect]
     Active Substance: FULVESTRANT
     Indication: Invasive ductal breast carcinoma
     Dosage: 500, FROM APR-2018, CONTINUED
     Route: 065
     Dates: start: 201804
  6. FULVESTRANT [Suspect]
     Active Substance: FULVESTRANT
     Indication: Breast cancer metastatic
  7. ZOLEDRONIC ACID [Suspect]
     Active Substance: ZOLEDRONIC ACID
     Indication: HER2 negative breast cancer
     Dosage: UNK
     Route: 065
     Dates: start: 2017
  8. ZOLEDRONIC ACID [Suspect]
     Active Substance: ZOLEDRONIC ACID
     Indication: Invasive ductal breast carcinoma
  9. ZOLEDRONIC ACID [Suspect]
     Active Substance: ZOLEDRONIC ACID
     Indication: Breast cancer metastatic
  10. CYCLOPHOSPHAMIDE [Suspect]
     Active Substance: CYCLOPHOSPHAMIDE
     Indication: Product used for unknown indication
     Dosage: UNK
     Route: 048
     Dates: start: 202108, end: 202112
  11. PALBOCICLIB [Suspect]
     Active Substance: PALBOCICLIB
     Indication: Invasive ductal breast carcinoma
     Dosage: 125 MILLIGRAM, Q28D (X 21 DAYS EVERY 28 DAYS)
     Route: 065
     Dates: start: 201712, end: 201802
  12. PALBOCICLIB [Suspect]
     Active Substance: PALBOCICLIB
     Indication: Breast cancer metastatic
     Dosage: 100 MILLIGRAM, Q28D (X 21 DAYS EVERY 28 DAYS,)
     Route: 065
     Dates: start: 201802, end: 201804
  13. PALBOCICLIB [Suspect]
     Active Substance: PALBOCICLIB
     Dosage: 75 MILLIGRAM, QD (X 21 DAYS EVERY 28 DAYS, CONTINUED)
     Route: 065
     Dates: start: 201804

REACTIONS (1)
  - Death [Fatal]

NARRATIVE: CASE EVENT DATE: 20220601
